FAERS Safety Report 10062587 (Version 1)
Quarter: 2014Q2

REPORT INFORMATION
  Report Type: Spontaneous
  Country: TR (occurrence: TR)
  Receive Date: 20140407
  Receipt Date: 20140407
  Transmission Date: 20141212
  Serious: Yes (Other)
  Sender: FDA-Public Use
  Company Number: TR-JNJFOC-20140401821

PATIENT
  Age: 33 Year
  Sex: Male

DRUGS (4)
  1. REMICADE [Suspect]
     Indication: IMMUNOSUPPRESSION
     Route: 042
     Dates: start: 20140319, end: 20140319
  2. BUDESONIDE-FORMOTEROL [Concomitant]
     Route: 065
  3. PREDNOL [Concomitant]
     Route: 065
  4. HYDROXYCHLOROQUINE [Concomitant]
     Route: 065

REACTIONS (2)
  - Tremor [Recovering/Resolving]
  - Tachycardia [Recovering/Resolving]
